FAERS Safety Report 20063491 (Version 1)
Quarter: 2021Q4

REPORT INFORMATION
  Report Type: Spontaneous
  Country: ES (occurrence: ES)
  Receive Date: 20211112
  Receipt Date: 20211112
  Transmission Date: 20220303
  Serious: Yes (Life-Threatening, Other)
  Sender: FDA-Public Use
  Company Number: ES-BBM-202100996

PATIENT
  Age: 13 Year
  Sex: Male
  Weight: 40 kg

DRUGS (3)
  1. REMIFENTANIL [Suspect]
     Active Substance: REMIFENTANIL
     Indication: Sedative therapy
     Dosage: MCG/KG/H
  2. PROPOFOL [Suspect]
     Active Substance: PROPOFOL
     Indication: Sedative therapy
     Dosage: UNK
  3. ROCURONIUM [Concomitant]
     Active Substance: ROCURONIUM BROMIDE
     Dosage: UNK

REACTIONS (2)
  - Drug ineffective [Recovered/Resolved]
  - Product use issue [Recovered/Resolved]
